FAERS Safety Report 6129142-X (Version None)
Quarter: 2009Q1

REPORT INFORMATION
  Report Type: 
  Country: None (occurrence: None)
  Receive Date: 20090323
  Receipt Date: 20090323
  Transmission Date: 20090719
  Serious: Yes (Life-Threatening)
  Sender: FDA-Public Use
  Company Number: None

PATIENT
  Sex: Male
  Weight: 22.5 kg

DRUGS (7)
  1. GAMMAGARD LIQUID [Suspect]
     Indication: KAWASAKI'S DISEASE
     Dosage: 45 GRAMS IV OVER 5 HOURS
     Route: 042
     Dates: start: 20090309
  2. OMNICEF [Concomitant]
  3. ACETAMINOPHEN [Concomitant]
  4. DIPHENHYDRAMINE [Concomitant]
  5. ASPIRIN [Concomitant]
  6. RED BLOOD CELLS [Concomitant]
  7. METHYLPREDNISOLONE 4MG TAB [Concomitant]

REACTIONS (1)
  - HAEMOLYSIS [None]
